FAERS Safety Report 21239880 (Version 1)
Quarter: 2022Q3

REPORT INFORMATION
  Report Type: Report from Study
  Country: EG (occurrence: EG)
  Receive Date: 20220822
  Receipt Date: 20220822
  Transmission Date: 20221027
  Serious: Yes (Other)
  Sender: FDA-Public Use
  Company Number: EG-NOVARTISPH-NVSC2022EG186035

PATIENT
  Sex: Male

DRUGS (11)
  1. GILENYA [Suspect]
     Active Substance: FINGOLIMOD HYDROCHLORIDE
     Indication: Multiple sclerosis
     Dosage: 0.5 MG, QD
     Route: 048
     Dates: start: 2019
  2. GILENYA [Suspect]
     Active Substance: FINGOLIMOD HYDROCHLORIDE
     Dosage: 0.5 MG, QOD
     Route: 048
  3. GILENYA [Suspect]
     Active Substance: FINGOLIMOD HYDROCHLORIDE
     Dosage: 2 DOSAGE FORM, QD
     Route: 048
  4. VITAMIN B12 [Concomitant]
     Active Substance: CYANOCOBALAMIN
     Indication: Vitamin supplementation
     Dosage: UNK UNK, QOD
     Route: 030
     Dates: start: 2022
  5. PK-MERZ [Concomitant]
     Active Substance: AMANTADINE
     Indication: Movement disorder
     Dosage: 1 DOSAGE FORM, BID
     Route: 048
     Dates: start: 2022
  6. OMEGA 3 [Concomitant]
     Active Substance: CAPSAICIN
     Indication: Supplementation therapy
     Dosage: 1 DOSAGE FORM, QD
     Route: 048
     Dates: start: 2022
  7. CAL-MAG [Concomitant]
     Indication: Mineral supplementation
     Dosage: 1 DOSAGE FORM, QD
     Route: 048
     Dates: start: 2022
  8. BONCARE [Concomitant]
     Indication: Vitamin supplementation
     Dosage: 1 DOSAGE FORM, QD
     Route: 065
     Dates: start: 2022
  9. NEUROVIT [Concomitant]
     Indication: Vitamin supplementation
     Dosage: ONE AMPOULE EVERY 3 DAYS
     Route: 030
     Dates: start: 2022
  10. ANTI INFLAMMATORY [Concomitant]
     Indication: Antiinflammatory therapy
     Dosage: 1 DOSAGE FORM, BID
     Route: 065
     Dates: start: 20220602, end: 20220804
  11. ANTI INFLAMMATORY [Concomitant]
     Indication: Oedema

REACTIONS (10)
  - Gait disturbance [Recovering/Resolving]
  - Hepatic enzyme increased [Recovered/Resolved]
  - Accident [Not Recovered/Not Resolved]
  - Tibia fracture [Not Recovered/Not Resolved]
  - Movement disorder [Not Recovered/Not Resolved]
  - Bladder disorder [Recovered/Resolved]
  - Crystal urine [Recovered/Resolved]
  - Pyuria [Recovered/Resolved]
  - Product dose omission issue [Recovered/Resolved]
  - Incorrect dose administered [Recovered/Resolved]

NARRATIVE: CASE EVENT DATE: 20190101
